FAERS Safety Report 12231239 (Version 1)
Quarter: 2016Q2

REPORT INFORMATION
  Report Type: Spontaneous
  Country: US (occurrence: US)
  Receive Date: 20160401
  Receipt Date: 20160401
  Transmission Date: 20160815
  Serious: Yes (Other)
  Sender: FDA-Public Use
  Company Number: CHPA2016US003947

PATIENT
  Age: 71 Year
  Sex: Female

DRUGS (1)
  1. TRANSDERM SCOP [Suspect]
     Active Substance: SCOPOLAMINE
     Indication: MOTION SICKNESS
     Dosage: 1 DF, Q72H
     Route: 062
     Dates: end: 2008

REACTIONS (3)
  - Vision blurred [Recovered/Resolved]
  - Wrong technique in product usage process [Unknown]
  - Breast cancer [Recovered/Resolved]
